FAERS Safety Report 7949163-1 (Version None)
Quarter: 2011Q4

REPORT INFORMATION
  Report Type: 
  Country: None (occurrence: None)
  Receive Date: 20111130
  Receipt Date: 20111123
  Transmission Date: 20120403
  Serious: Yes (Hospitalization)
  Sender: FDA-Public Use
  Company Number: IE-ROCHE-1015835

PATIENT
  Sex: Male

DRUGS (11)
  1. INTERFERON ALFA [Concomitant]
     Indication: RENAL CELL CARCINOMA
  2. DOMPERIDONE [Concomitant]
  3. AUGMENTIN [Concomitant]
  4. ASPIRIN [Concomitant]
  5. AMLODIPINE [Concomitant]
     Indication: HYPERTENSION
  6. OMEPRAZOLE [Concomitant]
  7. SENNA [Concomitant]
     Indication: CONSTIPATION
     Route: 048
  8. AVASTIN [Suspect]
     Indication: RENAL CELL CARCINOMA
     Route: 042
     Dates: end: 20111107
  9. LIPITOR [Concomitant]
     Indication: HYPERCHOLESTEROLAEMIA
  10. LEVOTHYROXINE SODIUM [Concomitant]
     Indication: HYPOTHYROIDISM
  11. DEXAMETHASONE [Concomitant]

REACTIONS (1)
  - PNEUMOTHORAX [None]
